FAERS Safety Report 9204094 (Version 1)
Quarter: 2013Q2

REPORT INFORMATION
  Report Type: Spontaneous
  Country: US (occurrence: US)
  Receive Date: 20130402
  Receipt Date: 20130402
  Transmission Date: 20140414
  Serious: No
  Sender: FDA-Public Use
  Company Number: US-009507513-1303USA011762

PATIENT
  Sex: Female
  Weight: 68.9 kg

DRUGS (1)
  1. VICTRELIS [Suspect]
     Indication: HEPATITIS C
     Dosage: 800 MG, TID
     Route: 048
     Dates: start: 20130109

REACTIONS (8)
  - Nasal congestion [Unknown]
  - Upper-airway cough syndrome [Unknown]
  - Cough [Unknown]
  - Swelling face [Unknown]
  - Local swelling [Unknown]
  - Rash [Unknown]
  - Weight increased [Unknown]
  - Urinary tract infection [Unknown]
